FAERS Safety Report 8182139-0 (Version None)
Quarter: 2012Q1

REPORT INFORMATION
  Report Type: 
  Country: None (occurrence: None)
  Receive Date: 20120302
  Receipt Date: 20120223
  Transmission Date: 20120608
  Serious: Yes (Other)
  Sender: FDA-Public Use
  Company Number: US-ASTRAZENECA-2010SE31481

PATIENT
  Age: 63 Year
  Sex: Male

DRUGS (7)
  1. LEVAQUIN [Concomitant]
  2. TOPROL-XL [Suspect]
     Route: 048
  3. CASODEX [Concomitant]
     Indication: PROSTATE CANCER
     Route: 048
     Dates: start: 20111005
  4. LUPRON [Concomitant]
     Indication: PROSTATE CANCER
     Dosage: TWO TO THREE WEEKS
     Route: 030
     Dates: start: 20111115
  5. TOPROL-XL [Suspect]
     Route: 048
  6. CRESTOR [Suspect]
     Route: 048
  7. ASPIRIN [Concomitant]

REACTIONS (7)
  - BONE SCAN ABNORMAL [None]
  - DRUG DOSE OMISSION [None]
  - CEREBROVASCULAR ACCIDENT [None]
  - LARYNGITIS [None]
  - PROSTATE CANCER [None]
  - OSTEOARTHRITIS [None]
  - PROSTATIC SPECIFIC ANTIGEN INCREASED [None]
